FAERS Safety Report 16678558 (Version 3)
Quarter: 2020Q1

REPORT INFORMATION
  Report Type: Spontaneous
  Country: US (occurrence: US)
  Receive Date: 20190807
  Receipt Date: 20200330
  Transmission Date: 20200409
  Serious: Yes (Death, Hospitalization, Other)
  Sender: FDA-Public Use
  Company Number: US-GILEAD-2019-0421725

PATIENT
  Age: 69 Year
  Sex: Male

DRUGS (3)
  1. TRUVADA [Concomitant]
     Active Substance: EMTRICITABINE\TENOFOVIR DISOPROXIL FUMARATE
  2. BIKTARVY [Concomitant]
     Active Substance: BICTEGRAVIR SODIUM\EMTRICITABINE\TENOFOVIR ALAFENAMIDE FUMARATE
  3. ATRIPLA [Suspect]
     Active Substance: EFAVIRENZ\EMTRICITABINE\TENOFOVIR DISOPROXIL FUMARATE
     Indication: HIV INFECTION
     Dosage: UNK
     Route: 048
     Dates: start: 200701, end: 20190609

REACTIONS (17)
  - Chronic kidney disease [Unknown]
  - Urinary tract infection [Unknown]
  - Hepatic cirrhosis [Fatal]
  - Osteoporosis [Unknown]
  - Anxiety [Unknown]
  - Economic problem [Unknown]
  - Emotional distress [Unknown]
  - Pain [Unknown]
  - Hepatic steatosis [Not Recovered/Not Resolved]
  - Platelet count decreased [Unknown]
  - Wrist fracture [Unknown]
  - Ammonia increased [Unknown]
  - Bone density decreased [Unknown]
  - Renal failure [Unknown]
  - Anhedonia [Unknown]
  - Osteopenia [Unknown]
  - Hepatosplenomegaly [Unknown]

NARRATIVE: CASE EVENT DATE: 20180213
